FAERS Safety Report 16882520 (Version 1)
Quarter: 2019Q4

REPORT INFORMATION
  Report Type: Spontaneous
  Country: US (occurrence: US)
  Receive Date: 20191003
  Receipt Date: 20191003
  Transmission Date: 20200122
  Serious: No
  Sender: FDA-Public Use
  Company Number: US-TEIKOKU PHARMA USA-TPU2019-00662

PATIENT
  Age: 90 Year
  Sex: Male
  Weight: 61.29 kg

DRUGS (4)
  1. UNKNOWN MEDICATION FOR BLOOD PRESSURE [Concomitant]
     Indication: HYPERTENSION
  2. SINOVASTAIN [Concomitant]
     Indication: BLOOD CHOLESTEROL INCREASED
  3. PREGABALIN. [Concomitant]
     Active Substance: PREGABALIN
     Indication: NEURALGIA
     Dates: start: 20190908
  4. LIDOCAINE PATCH [Suspect]
     Active Substance: LIDOCAINE
     Indication: SCIATICA
     Route: 061
     Dates: start: 20190911, end: 20190914

REACTIONS (2)
  - Pain [Recovered/Resolved]
  - Application site coldness [Unknown]

NARRATIVE: CASE EVENT DATE: 20190911
